FAERS Safety Report 4412834-8 (Version None)
Quarter: 2004Q3

REPORT INFORMATION
  Report Type: 
  Country: None (occurrence: None)
  Receive Date: 20040727
  Receipt Date: 20040716
  Transmission Date: 20050211
  Serious: Yes (Death)
  Sender: FDA-Public Use
  Company Number: HQWYE416126JUL04

PATIENT

DRUGS (2)
  1. RAPAMUNE [Suspect]
  2. LIPITOR [Concomitant]

REACTIONS (1)
  - MYOCARDIAL INFARCTION [None]
